APPROVED DRUG PRODUCT: IFOSFAMIDE
Active Ingredient: IFOSFAMIDE
Strength: 3GM/VIAL
Dosage Form/Route: INJECTABLE;INJECTION
Application: A076078 | Product #002 | TE Code: AP
Applicant: FRESENIUS KABI USA LLC
Approved: May 28, 2002 | RLD: No | RS: Yes | Type: RX